FAERS Safety Report 9154097 (Version 3)
Quarter: 2013Q3

REPORT INFORMATION
  Report Type: Spontaneous
  Country: US (occurrence: US)
  Receive Date: 20130311
  Receipt Date: 20130704
  Transmission Date: 20140515
  Serious: Yes (Hospitalization, Other)
  Sender: FDA-Public Use
  Company Number: US-PFIZER INC-2013082088

PATIENT
  Age: 77 Year
  Sex: Female
  Weight: 56.69 kg

DRUGS (15)
  1. NEURONTIN [Suspect]
     Indication: ARTHRITIS
     Dosage: 300 MG, 3X/DAY
     Dates: start: 201009
  2. NEURONTIN [Suspect]
     Dosage: 600 MG, 3X/DAY
     Dates: start: 201301
  3. NEURONTIN [Suspect]
     Dosage: 300 MG, 3X/DAY
  4. NEURONTIN [Suspect]
     Dosage: 300 MG, UNK, AT BEDTIME
  5. KLONOPIN [Suspect]
     Dosage: UNK DAILY
     Dates: start: 2012, end: 201207
  6. DESYREL [Concomitant]
     Dosage: UNK
  7. DITROPAN [Concomitant]
     Dosage: UNK
  8. PRILOSEC [Concomitant]
  9. RESTASIS [Concomitant]
     Dosage: UNK
  10. SYNTHROID [Concomitant]
     Dosage: UNK
  11. AMBIEN [Concomitant]
     Dosage: UNK
  12. AMLODIPINE [Concomitant]
     Dosage: UNK
  13. DITROPAN XL [Concomitant]
     Dosage: UNK
  14. ESTROGENS [Concomitant]
     Dosage: UNK
  15. VITAMIN D [Concomitant]
     Dosage: UNK

REACTIONS (21)
  - Dizziness [Recovering/Resolving]
  - Tinnitus [Recovering/Resolving]
  - Brain hypoxia [Unknown]
  - Spinal disorder [Unknown]
  - Weight abnormal [Unknown]
  - Vision blurred [Unknown]
  - Abdominal pain [Unknown]
  - Wrong drug administered [Unknown]
  - Anxiety [Unknown]
  - Migraine [Unknown]
  - Diarrhoea [Unknown]
  - Dyspepsia [Unknown]
  - Chest pain [Unknown]
  - Myalgia [Unknown]
  - Arthralgia [Unknown]
  - Fatigue [Unknown]
  - Sinus disorder [Unknown]
  - Depression [Unknown]
  - Headache [Unknown]
  - Occipital neuralgia [Unknown]
  - Neck pain [Unknown]
